FAERS Safety Report 6466422-2 (Version None)
Quarter: 2009Q4

REPORT INFORMATION
  Report Type: 
  Country: None (occurrence: None)
  Receive Date: 20091201
  Receipt Date: 20091201
  Transmission Date: 20100525
  Serious: Yes (Other)
  Sender: FDA-Public Use
  Company Number: None

PATIENT
  Age: 58 Year
  Sex: Female
  Weight: 99.7913 kg

DRUGS (1)
  1. PREVACID [Suspect]
     Indication: DYSPEPSIA
     Dosage: 1 CAPSULE DAILY PO  MONTHS
     Route: 048
     Dates: start: 20090601, end: 20091101

REACTIONS (1)
  - COLITIS COLLAGENOUS [None]
